FAERS Safety Report 13814223 (Version 1)
Quarter: 2017Q3

REPORT INFORMATION
  Report Type: Spontaneous
  Country: US (occurrence: US)
  Receive Date: 20170730
  Receipt Date: 20170730
  Transmission Date: 20171127
  Serious: No
  Sender: FDA-Public Use
  Company Number: None

PATIENT
  Sex: Male

DRUGS (1)
  1. SPIRIVA RESPIMAT [Suspect]
     Active Substance: TIOTROPIUM BROMIDE
     Indication: ASTHMA
     Dosage: ?          QUANTITY:60 INHALATION(S);?
     Route: 055
     Dates: start: 20170601, end: 20170729

REACTIONS (4)
  - Vocal cord disorder [None]
  - Dysphonia [None]
  - Aphasia [None]
  - Pain [None]

NARRATIVE: CASE EVENT DATE: 20170701
